FAERS Safety Report 7764039-0 (Version None)
Quarter: 2011Q3

REPORT INFORMATION
  Report Type: 
  Country: None (occurrence: None)
  Receive Date: 20110921
  Receipt Date: 20110919
  Transmission Date: 20111222
  Serious: No
  Sender: FDA-Public Use
  Company Number: US-PFIZER INC-2011222163

PATIENT
  Sex: Female

DRUGS (1)
  1. PREMARIN [Suspect]
     Dosage: UNK, 1X/DAY
     Route: 067
     Dates: start: 20100514

REACTIONS (1)
  - POOR QUALITY DRUG ADMINISTERED [None]
